FAERS Safety Report 4827984-1 (Version None)
Quarter: 2005Q4

REPORT INFORMATION
  Report Type: 
  Country: None (occurrence: None)
  Receive Date: 20051110
  Receipt Date: 20051101
  Transmission Date: 20060501
  Serious: Yes (Other)
  Sender: FDA-Public Use
  Company Number: 2005-03080

PATIENT
  Age: 47 Year
  Sex: Female

DRUGS (2)
  1. ANDRODERM [Suspect]
     Indication: BLOOD TESTOSTERONE DECREASED
     Dosage: 1 PATCH, QAM, TOPICAL
     Route: 061
     Dates: start: 20030901, end: 20041201
  2. ANDROGEL [Suspect]
     Indication: BLOOD TESTOSTERONE DECREASED
     Dosage: TOPICAL
     Route: 061
     Dates: start: 20041201, end: 20050501

REACTIONS (6)
  - ACCIDENTAL EXPOSURE [None]
  - DERMATITIS CONTACT [None]
  - DRUG INEFFECTIVE [None]
  - HYPERSENSITIVITY [None]
  - LEUKOCYTOCLASTIC VASCULITIS [None]
  - RENAL VASCULITIS [None]
